FAERS Safety Report 5681111-X (Version None)
Quarter: 2008Q1

REPORT INFORMATION
  Report Type: 
  Country: None (occurrence: None)
  Receive Date: 20080325
  Receipt Date: 20080311
  Transmission Date: 20080703
  Serious: Yes (Disabling)
  Sender: FDA-Public Use
  Company Number: 2008AL001617

PATIENT
  Age: 31 Year
  Sex: Female

DRUGS (5)
  1. NIFEDIPINE CAPSULES USP, 10 MG (PEG FORMULATION) (NIFEDIPINE CAPSULES [Suspect]
     Indication: INSOMNIA
     Dosage: 10 MG
     Dates: start: 20040101
  2. AMITRIPTYLINE HCL [Concomitant]
  3. PROVIGIL [Concomitant]
  4. MICROGYNON [Concomitant]
  5. CALCICHEW [Concomitant]

REACTIONS (1)
  - LUPUS-LIKE SYNDROME [None]
